FAERS Safety Report 6728079-2 (Version None)
Quarter: 2010Q2

REPORT INFORMATION
  Report Type: 
  Country: None (occurrence: None)
  Receive Date: 20100517
  Receipt Date: 20100506
  Transmission Date: 20101027
  Serious: Yes (Hospitalization)
  Sender: FDA-Public Use
  Company Number: GXKR2010FR04668

PATIENT
  Age: 75 Year
  Sex: Male

DRUGS (7)
  1. ACETYLSALICYLIC ACID SRT [Suspect]
     Indication: PERICARDIAL EFFUSION
     Dosage: 3 G/DAY
     Route: 065
  2. ACETYLSALICYLIC ACID SRT [Interacting]
     Dosage: 2 G/DAY
     Route: 065
  3. DEPAKENE [Interacting]
     Indication: EPILEPSY
     Dosage: 2 DF/DAY
     Route: 065
  4. DEPAKENE [Interacting]
     Dosage: 750 MG/DAY (ONE AND A HALF TABLET/DAY)
     Route: 065
  5. FLUOXETINE [Concomitant]
     Dosage: 1 DF, QD
     Route: 065
  6. ALLOPURINOL [Concomitant]
     Dosage: 1 DF, QD
     Route: 065
  7. TAMSULOSIN HYDROCHLORIDE [Concomitant]
     Dosage: 1 DF, QD
     Route: 065

REACTIONS (9)
  - BALANCE DISORDER [None]
  - BEDRIDDEN [None]
  - CEREBELLAR SYNDROME [None]
  - COGNITIVE DISORDER [None]
  - DEMENTIA [None]
  - DRUG INTERACTION [None]
  - EXTRAPYRAMIDAL DISORDER [None]
  - MINOR COGNITIVE MOTOR DISORDER [None]
  - NERVOUS SYSTEM DISORDER [None]
